FAERS Safety Report 13781634 (Version 1)
Quarter: 2017Q3

REPORT INFORMATION
  Report Type: Spontaneous
  Country: GB (occurrence: GB)
  Receive Date: 20170724
  Receipt Date: 20170724
  Transmission Date: 20171127
  Serious: Yes (Death, Hospitalization, Other)
  Sender: FDA-Public Use
  Company Number: GB-PFIZER INC-2989955

PATIENT
  Age: 4 Year
  Sex: Male
  Weight: 15 kg

DRUGS (6)
  1. IBUPROFEN. [Concomitant]
     Active Substance: IBUPROFEN
     Indication: PRODUCT USED FOR UNKNOWN INDICATION
     Dosage: UNK
  2. METHOTREXATE SODIUM. [Suspect]
     Active Substance: METHOTREXATE SODIUM
     Indication: JUVENILE IDIOPATHIC ARTHRITIS
     Dosage: 10 MG, FREQ:1 WEEK; INTERVAL: 1
     Route: 048
     Dates: start: 20140704, end: 20140820
  3. FOLIC ACID. [Concomitant]
     Active Substance: FOLIC ACID
     Indication: JUVENILE IDIOPATHIC ARTHRITIS
     Dosage: UNK
  4. PREDNISOLONE. [Concomitant]
     Active Substance: PREDNISOLONE
     Indication: JUVENILE IDIOPATHIC ARTHRITIS
     Dosage: 20 MG, CUMULATIVE DOSE:760 MG, FREQ:1 DAY; INTERVAL :1
     Dates: start: 20140704, end: 20140714
  5. PREDNISOLONE. [Concomitant]
     Active Substance: PREDNISOLONE
     Dosage: 10 MG, CUMULATIVE DOSE:270 MG, FREQ: 1 DAY; INTERVAL:1
     Dates: start: 20140715, end: 20140725
  6. PREDNISOLONE. [Concomitant]
     Active Substance: PREDNISOLONE
     Dosage: 5 MG, FREQ: 1 DAY; INTERVAL: 1
     Dates: start: 20140726

REACTIONS (11)
  - Malaise [Unknown]
  - Swelling [Not Recovered/Not Resolved]
  - Respiratory failure [Fatal]
  - Diffuse alveolar damage [Fatal]
  - Respiratory distress [Not Recovered/Not Resolved]
  - Emphysema [Unknown]
  - Cough [Unknown]
  - Pneumonitis [Fatal]
  - Pyrexia [Unknown]
  - Pulmonary fibrosis [Fatal]
  - Dyspnoea [Not Recovered/Not Resolved]

NARRATIVE: CASE EVENT DATE: 20140811
